FAERS Safety Report 23896764 (Version 5)
Quarter: 2024Q3

REPORT INFORMATION
  Report Type: Report from Study
  Country: BR (occurrence: BR)
  Receive Date: 20240524
  Receipt Date: 20240703
  Transmission Date: 20241017
  Serious: Yes (Hospitalization)
  Sender: JOHNSON AND JOHNSON
  Company Number: BR-JNJFOC-20240551092

PATIENT
  Age: 22 Year
  Sex: Female
  Weight: 56 kg

DRUGS (4)
  1. SPRAVATO [Suspect]
     Active Substance: ESKETAMINE
     Indication: Major depression
     Dates: start: 20231031
  2. ESCITALOPRAM OXALATE [Concomitant]
     Active Substance: ESCITALOPRAM OXALATE
     Indication: Depression
     Route: 065
  3. RISPERIDONE [Concomitant]
     Active Substance: RISPERIDONE
     Indication: Depression
  4. LURASIDONE [Concomitant]
     Active Substance: LURASIDONE
     Indication: Depression
     Route: 065

REACTIONS (10)
  - Intracranial aneurysm [Not Recovered/Not Resolved]
  - Depression [Unknown]
  - Product dose omission issue [Unknown]
  - Depressed mood [Unknown]
  - Anhedonia [Unknown]
  - Discouragement [Unknown]
  - Abulia [Unknown]
  - Cognitive disorder [Unknown]
  - Emotional poverty [Unknown]
  - Morbid thoughts [Unknown]

NARRATIVE: CASE EVENT DATE: 20240401
